FAERS Safety Report 16026693 (Version 1)
Quarter: 2019Q1

REPORT INFORMATION
  Report Type: Other
  Country: RO (occurrence: RO)
  Receive Date: 20190303
  Receipt Date: 20190303
  Transmission Date: 20190418
  Serious: Yes (Hospitalization, Other)
  Sender: FDA-Public Use
  Company Number: RO-APOTEX-2019AP008532

PATIENT
  Age: 19 Year
  Sex: Female
  Weight: 45.58 kg

DRUGS (9)
  1. ACUTIL                             /09541101/ [Concomitant]
     Indication: PRODUCT USED FOR UNKNOWN INDICATION
     Dosage: 1 DF, QD (1 TABLET PER DAY)
     Route: 065
  2. SERTRALINE [Suspect]
     Active Substance: SERTRALINE HYDROCHLORIDE
     Indication: ANOREXIA NERVOSA
     Dosage: 100 MG, QD (TWO TABLETS PER DAY)
     Route: 065
  3. FERRO FOLGAMMA [Concomitant]
     Indication: ANAEMIA
     Dosage: 3 DF, QD (THREE TABLETS PER DAY)
     Route: 065
  4. VITAMIN B1 [Concomitant]
     Active Substance: THIAMINE HYDROCHLORIDE
     Indication: PRODUCT USED FOR UNKNOWN INDICATION
     Dosage: INJECTION FOR TWO WEEKS
     Route: 065
  5. OLANZAPINE. [Suspect]
     Active Substance: OLANZAPINE
     Indication: DEPRESSION
     Dosage: UNK
     Route: 065
  6. SERTRALINE [Suspect]
     Active Substance: SERTRALINE HYDROCHLORIDE
     Indication: DEPRESSION
     Dosage: UNK
     Route: 065
  7. MALTOFER                           /00023548/ [Concomitant]
     Active Substance: IRON POLYMALTOSE
     Indication: ANAEMIA
     Dosage: 2 DF, QD (TWO TABLETS PER DAY)
     Route: 065
  8. OLANZAPINE. [Suspect]
     Active Substance: OLANZAPINE
     Indication: ANOREXIA NERVOSA
     Dosage: 10 MG, QD (1 TABLET PER DAY)
     Route: 065
  9. VITAMIN B6 [Concomitant]
     Active Substance: PYRIDOXINE HYDROCHLORIDE
     Indication: PRODUCT USED FOR UNKNOWN INDICATION
     Dosage: INJECTION FOR TWO WEEKS
     Route: 065

REACTIONS (2)
  - Weight decreased [Recovered/Resolved]
  - Suicide attempt [Recovered/Resolved]
